FAERS Safety Report 7444576-9 (Version None)
Quarter: 2011Q2

REPORT INFORMATION
  Report Type: 
  Country: None (occurrence: None)
  Receive Date: 20110429
  Receipt Date: 20110426
  Transmission Date: 20111010
  Serious: Yes (Life-Threatening, Hospitalization)
  Sender: FDA-Public Use
  Company Number: GB-PFIZER INC-2011090229

PATIENT
  Age: 33 Year
  Sex: Female

DRUGS (7)
  1. CYCLOPHOSPHAMIDE [Suspect]
     Indication: BREAST CANCER
     Dosage: 1086 MG, UNK
     Route: 042
     Dates: start: 20110318, end: 20110318
  2. DOMPERIDONE [Concomitant]
     Indication: NAUSEA
     Dosage: 10 MG, UNK
     Route: 048
     Dates: start: 20110318, end: 20110326
  3. DOCETAXEL [Suspect]
     Indication: BREAST CANCER
     Dosage: 136 MG, UNK
     Route: 042
     Dates: start: 20110318, end: 20110318
  4. FILGRASTIM [Concomitant]
     Indication: CHEMOTHERAPY
     Dosage: 30 IU, UNK
     Route: 058
     Dates: start: 20110320, end: 20110326
  5. DEXAMETHASONE [Concomitant]
     Indication: CHEMOTHERAPY
     Dosage: 8 MG, UNK
     Route: 048
     Dates: start: 20110318, end: 20110326
  6. TEMAZEPAM [Concomitant]
     Dosage: 10 MG, UNK
     Route: 048
     Dates: end: 20110326
  7. DOXORUBICIN [Suspect]
     Indication: BREAST CANCER
     Dosage: 109 MG, UNK
     Route: 042
     Dates: start: 20110318, end: 20110318

REACTIONS (3)
  - INTESTINAL ISCHAEMIA [None]
  - PLEURAL EFFUSION [None]
  - TACHYCARDIA [None]
